FAERS Safety Report 19039244 (Version 1)
Quarter: 2021Q1

REPORT INFORMATION
  Report Type: Spontaneous
  Country: GB (occurrence: GB)
  Receive Date: 20210322
  Receipt Date: 20210322
  Transmission Date: 20210420
  Serious: Yes (Other)
  Sender: FDA-Public Use
  Company Number: GB-CLOVIS ONCOLOGY-CLO-2021-000473

PATIENT

DRUGS (2)
  1. RUBRACA [Suspect]
     Active Substance: RUCAPARIB CAMSYLATE
     Indication: OVARIAN CANCER STAGE III
     Dosage: 600 MILLIGRAM, BID
  2. RUBRACA [Suspect]
     Active Substance: RUCAPARIB CAMSYLATE
     Indication: GENE MUTATION IDENTIFICATION TEST NEGATIVE
     Dosage: 500 MILLIGRAM, BID

REACTIONS (6)
  - Anaemia [Unknown]
  - Transaminases increased [Recovering/Resolving]
  - Thrombocytopenia [Recovering/Resolving]
  - COVID-19 [Recovering/Resolving]
  - Renal impairment [Unknown]
  - Blood creatinine increased [Unknown]
